FAERS Safety Report 16647455 (Version 1)
Quarter: 2019Q3

REPORT INFORMATION
  Report Type: Spontaneous
  Country: US (occurrence: US)
  Receive Date: 20190729
  Receipt Date: 20190729
  Transmission Date: 20191004
  Serious: Yes (Life-Threatening, Hospitalization)
  Sender: FDA-Public Use
  Company Number: None

PATIENT
  Age: 36 Year
  Sex: Male
  Weight: 100 kg

DRUGS (2)
  1. METFORMIN 500MG XR [Concomitant]
     Dates: start: 20190722, end: 20190724
  2. JARDIANCE [Suspect]
     Active Substance: EMPAGLIFLOZIN
     Indication: DIABETES MELLITUS
     Route: 048
     Dates: start: 20190722, end: 20190724

REACTIONS (2)
  - Euglycaemic diabetic ketoacidosis [None]
  - Therapy change [None]

NARRATIVE: CASE EVENT DATE: 20190724
